FAERS Safety Report 6498960-0 (Version None)
Quarter: 2009Q4

REPORT INFORMATION
  Report Type: 
  Country: None (occurrence: None)
  Receive Date: 20091215
  Receipt Date: 20091201
  Transmission Date: 20100525
  Serious: Yes (Hospitalization, Other)
  Sender: FDA-Public Use
  Company Number: ES-MYLANLABS-2009S1020642

PATIENT
  Age: 13 Year
  Sex: Male
  Weight: 90 kg

DRUGS (4)
  1. ALBUTEROL [Suspect]
     Indication: ASTHMA
     Dosage: 15MG IN THE FIRST HOUR
     Route: 055
  2. ALBUTEROL [Suspect]
     Dosage: 5 MG/HOUR
     Route: 055
  3. IPRATROPIUM BROMIDE [Concomitant]
     Indication: ASTHMA
     Dosage: 500 MICROG/HOUR
     Route: 055
  4. METHYLPREDNISOLONE [Concomitant]
     Indication: ASTHMA
     Route: 042

REACTIONS (1)
  - LACTIC ACIDOSIS [None]
